FAERS Safety Report 5060666-2 (Version None)
Quarter: 2006Q3

REPORT INFORMATION
  Report Type: 
  Country: None (occurrence: None)
  Receive Date: 20060719
  Receipt Date: 20060719
  Transmission Date: 20061208
  Serious: Yes (Hospitalization)
  Sender: FDA-Public Use
  Company Number: None

PATIENT
  Age: 69 Year
  Sex: Male
  Weight: 108.8633 kg

DRUGS (14)
  1. OPTIMARK [Suspect]
     Indication: CORONARY ARTERY DISEASE
     Dosage: 44 CC ONCE IV BOLUS
     Route: 040
     Dates: start: 20040720, end: 20040720
  2. OPTIMARK [Suspect]
     Indication: VENTRICULAR DYSFUNCTION
     Dosage: 44 CC ONCE IV BOLUS
     Route: 040
     Dates: start: 20040720, end: 20040720
  3. ECOTRIN [Concomitant]
  4. LOPRESSOR [Concomitant]
  5. ZOFRAN [Concomitant]
  6. DEMADEX [Concomitant]
  7. ROBITUSSIN DM [Concomitant]
  8. PERCOCET [Concomitant]
  9. LEVAQUIN [Concomitant]
  10. PROTONIX [Concomitant]
  11. IBPROPHEN [Concomitant]
  12. GUAIFENESIN DM [Concomitant]
  13. HYCODAN [Concomitant]
  14. TESSALON PERLS [Concomitant]

REACTIONS (3)
  - POSTOPERATIVE THORACIC PROCEDURE COMPLICATION [None]
  - POSTOPERATIVE WOUND INFECTION [None]
  - WOUND INFECTION STAPHYLOCOCCAL [None]
